FAERS Safety Report 7633413-5 (Version None)
Quarter: 2011Q3

REPORT INFORMATION
  Report Type: 
  Country: None (occurrence: None)
  Receive Date: 20110725
  Receipt Date: 20110713
  Transmission Date: 20111222
  Serious: Yes (Hospitalization, Congenital Anomaly, Other)
  Sender: FDA-Public Use
  Company Number: US-PFIZER INC-2011160652

PATIENT
  Sex: Male

DRUGS (21)
  1. ZOLOFT [Suspect]
     Indication: DEPRESSION
     Dosage: 200 MG, DAILY
     Route: 064
     Dates: start: 20011127
  2. COMBIVENT [Concomitant]
     Dosage: UNK
     Route: 064
     Dates: start: 20020201
  3. VANCERIL [Concomitant]
     Dosage: UNK
     Route: 064
     Dates: start: 20020305
  4. PRENATAL VITAMINS [Concomitant]
     Dosage: UNK
     Route: 064
     Dates: start: 20020328
  5. AEROBID [Concomitant]
     Dosage: UNK
     Route: 064
     Dates: start: 20020111
  6. BIAXIN XL [Concomitant]
     Dosage: 500 MG, UNK
     Route: 064
     Dates: start: 20020119
  7. NICOTINE [Concomitant]
     Dosage: 14 MG FOR 24 HOUR
     Route: 064
     Dates: start: 20020424
  8. ACETAMINOPHEN AND HYDROCODONE BITARTRATE [Concomitant]
     Dosage: UNK
     Route: 064
     Dates: start: 20020114
  9. PREDNISONE [Concomitant]
     Dosage: 10 MG, UNK
     Route: 064
     Dates: start: 20020119
  10. FLOVENT [Concomitant]
     Indication: ASTHMA
     Dosage: 110 UG, UNK
     Route: 064
     Dates: start: 20020114
  11. SEROQUEL [Concomitant]
     Dosage: 300 MG, UNK
     Route: 064
     Dates: start: 20020201
  12. METHYLPREDNISOLONE ACETATE [Concomitant]
     Dosage: 4 MG, UNK
     Route: 064
     Dates: start: 20020626
  13. BENADRYL [Concomitant]
     Dosage: UNK
     Route: 064
     Dates: start: 20020724
  14. ALBUTEROL SULFATE AUTOHALER [Concomitant]
     Dosage: 90 UG, UNK
     Route: 064
     Dates: start: 20020201
  15. AMOXICILLIN [Concomitant]
     Dosage: 500 MG, UNK
     Route: 064
     Dates: start: 20020309
  16. HYDROXYZINE [Concomitant]
     Dosage: 25 MG, UNK
     Route: 064
     Dates: start: 20020407
  17. MONTELUKAST [Concomitant]
     Dosage: 10 MG, UNK
     Route: 064
     Dates: start: 20020422
  18. CEFTIN [Concomitant]
     Dosage: UNK
     Route: 064
     Dates: start: 20020628
  19. SEREVENT [Concomitant]
     Dosage: 21 UG, UNK
     Route: 064
     Dates: start: 20020201
  20. ADVAIR DISKUS 100/50 [Concomitant]
     Dosage: UNK
     Route: 064
     Dates: start: 20020701
  21. ATROVENT [Concomitant]
     Dosage: UNK
     Route: 064
     Dates: start: 20020702

REACTIONS (4)
  - TALIPES [None]
  - MATERNAL EXPOSURE DURING PREGNANCY [None]
  - MATERNAL DRUGS AFFECTING FOETUS [None]
  - CONVULSION NEONATAL [None]
